FAERS Safety Report 11761176 (Version 4)
Quarter: 2016Q2

REPORT INFORMATION
  Report Type: Spontaneous
  Country: PT (occurrence: PT)
  Receive Date: 20151120
  Receipt Date: 20160429
  Transmission Date: 20160815
  Serious: Yes (Death, Hospitalization, Other)
  Sender: FDA-Public Use
  Company Number: PT-GILEAD-2015-0183216

PATIENT
  Age: 68 Year
  Sex: Male

DRUGS (2)
  1. HARVONI [Suspect]
     Active Substance: LEDIPASVIR\SOFOSBUVIR
     Indication: HEPATITIS C
     Dosage: UNK
     Route: 065
     Dates: start: 2015
  2. 5-ASA [Concomitant]
     Active Substance: MESALAMINE
     Indication: COLITIS ULCERATIVE
     Dosage: 1500 UNK, UNK

REACTIONS (4)
  - Respiratory disorder [Unknown]
  - Hepatic mass [Fatal]
  - Lung adenocarcinoma [Fatal]
  - Pneumonia [Unknown]

NARRATIVE: CASE EVENT DATE: 2015
